FAERS Safety Report 16667719 (Version 2)
Quarter: 2020Q1

REPORT INFORMATION
  Report Type: Spontaneous
  Country: FR (occurrence: FR)
  Receive Date: 20190805
  Receipt Date: 20200204
  Transmission Date: 20200409
  Serious: Yes (Other)
  Sender: FDA-Public Use
  Company Number: PHHY2019FR177375

PATIENT
  Sex: Male

DRUGS (5)
  1. NEVIRAPINE. [Suspect]
     Active Substance: NEVIRAPINE
     Indication: FOETAL EXPOSURE DURING PREGNANCY
     Dosage: 1 DOSES
     Route: 064
  2. LAMIVUDINE. [Suspect]
     Active Substance: LAMIVUDINE
     Indication: FOETAL EXPOSURE DURING PREGNANCY
     Dosage: UNK
     Route: 064
  3. ZIDOVUDINE. [Suspect]
     Active Substance: ZIDOVUDINE
     Indication: FOETAL EXPOSURE DURING PREGNANCY
     Dosage: UNK
     Route: 048
  4. RETROVIR [Suspect]
     Active Substance: ZIDOVUDINE
     Indication: FOETAL EXPOSURE DURING PREGNANCY
     Dosage: 2 DF, UNK
     Route: 064
  5. DIDANOSINE. [Suspect]
     Active Substance: DIDANOSINE
     Indication: FOETAL EXPOSURE DURING PREGNANCY
     Dosage: 1 DOSE
     Route: 064

REACTIONS (2)
  - Foetal exposure during pregnancy [Unknown]
  - Pinealoblastoma [Unknown]

NARRATIVE: CASE EVENT DATE: 2001
